FAERS Safety Report 9910660 (Version 2)
Quarter: 2014Q1

REPORT INFORMATION
  Report Type: Spontaneous
  Country: US (occurrence: US)
  Receive Date: 20140219
  Receipt Date: 20140219
  Transmission Date: 20141002
  Serious: No
  Sender: FDA-Public Use
  Company Number: US-GILEAD-2012-0051881

PATIENT
  Age: 65 Year
  Sex: Female

DRUGS (3)
  1. LETAIRIS [Suspect]
     Indication: PULMONARY ARTERIAL HYPERTENSION
     Dosage: 5 MG,
     Route: 048
     Dates: start: 20120210
  2. LASIX                              /00032601/ [Concomitant]
  3. POTASSIUM [Concomitant]

REACTIONS (1)
  - Local swelling [Unknown]
